FAERS Safety Report 24636789 (Version 1)
Quarter: 2024Q4

REPORT INFORMATION
  Report Type: Spontaneous
  Country: US (occurrence: US)
  Receive Date: 20241119
  Receipt Date: 20241119
  Transmission Date: 20250115
  Serious: No
  Sender: MYLAN
  Company Number: US-MYLANLABS-2024M1100269

PATIENT
  Sex: Female
  Weight: 66.22 kg

DRUGS (2)
  1. ESTRADIOL TRANSDERMAL SYSTEM [Suspect]
     Active Substance: ESTRADIOL
     Indication: Menopause
     Dosage: 0.05 MILLIGRAM, QD (PER DAY, ONCE-WEEKLY)
     Route: 062
     Dates: start: 202409
  2. PROGESTERONE [Concomitant]
     Active Substance: PROGESTERONE
     Indication: Menopause
     Dosage: 100 MILLIGRAM, QD (ONCE A DAY)
     Route: 065

REACTIONS (2)
  - Application site inflammation [Unknown]
  - Application site ulcer [Unknown]
